FAERS Safety Report 15276239 (Version 1)
Quarter: 2018Q3

REPORT INFORMATION
  Report Type: Spontaneous
  Country: US (occurrence: US)
  Receive Date: 20180728
  Receipt Date: 20180728
  Transmission Date: 20181010
  Serious: Yes (Hospitalization, Disabling)
  Sender: FDA-Public Use
  Company Number: None

PATIENT
  Age: 65 Year
  Sex: Female
  Weight: 67.5 kg

DRUGS (5)
  1. MINOCYCLINE [Suspect]
     Active Substance: MINOCYCLINE\MINOCYCLINE HYDROCHLORIDE
     Indication: DERMATITIS
     Dosage: ?          QUANTITY:1 CAPSULE(S);?
     Route: 048
     Dates: start: 20170925, end: 20171115
  2. CENTRUM DAILY VITAMIN [Concomitant]
  3. PREDNISONE. [Concomitant]
     Active Substance: PREDNISONE
  4. SULFAMETHOXAZOLE?TMP DS [Concomitant]
     Active Substance: SULFAMETHOXAZOLE\TRIMETHOPRIM
  5. VITAMIN D [Concomitant]
     Active Substance: CHOLECALCIFEROL

REACTIONS (5)
  - Bronchitis [None]
  - Alveolitis allergic [None]
  - Pulmonary oedema [None]
  - Cough [None]
  - Dyspnoea [None]

NARRATIVE: CASE EVENT DATE: 20180208
